FAERS Safety Report 14634860 (Version 3)
Quarter: 2018Q4

REPORT INFORMATION
  Report Type: Report from Study
  Country: None (occurrence: BR)
  Receive Date: 20180314
  Receipt Date: 20181214
  Transmission Date: 20190204
  Serious: Yes (Other)
  Sender: FDA-Public Use
  Company Number: BR-ABBVIE-18K-020-2287274-00

PATIENT
  Age: 51 Year
  Sex: Male
  Weight: 75 kg

DRUGS (3)
  1. HUMIRA [Suspect]
     Active Substance: ADALIMUMAB
     Indication: CROHN^S DISEASE
     Route: 058
     Dates: start: 20120301
  2. HUMIRA [Suspect]
     Active Substance: ADALIMUMAB
     Route: 058
  3. HUMIRA [Suspect]
     Active Substance: ADALIMUMAB
     Route: 058

REACTIONS (6)
  - Gastrointestinal infection [Recovered/Resolved]
  - Stenosis [Unknown]
  - Haematochezia [Unknown]
  - Intestinal perforation [Recovered/Resolved]
  - Stress [Unknown]
  - Crohn^s disease [Unknown]

NARRATIVE: CASE EVENT DATE: 201811
